FAERS Safety Report 7478303-6 (Version None)
Quarter: 2011Q2

REPORT INFORMATION
  Report Type: 
  Country: None (occurrence: None)
  Receive Date: 20110513
  Receipt Date: 20091028
  Transmission Date: 20111010
  Serious: No
  Sender: FDA-Public Use
  Company Number: US-PFIZER INC-2009271293

PATIENT
  Sex: Male

DRUGS (1)
  1. HYDROXYZINE HCL [Suspect]

REACTIONS (2)
  - FATIGUE [None]
  - SOMNOLENCE [None]
